FAERS Safety Report 9712854 (Version 1)
Quarter: 2013Q4

REPORT INFORMATION
  Report Type: Spontaneous
  Country: US (occurrence: US)
  Receive Date: 20131126
  Receipt Date: 20131126
  Transmission Date: 20140711
  Serious: Yes (Other)
  Sender: FDA-Public Use
  Company Number: US-BRISTOL-MYERS SQUIBB COMPANY-18935833

PATIENT
  Sex: Male

DRUGS (1)
  1. BYDUREON [Suspect]
     Dates: start: 201210

REACTIONS (1)
  - Anaphylactic shock [Unknown]
